FAERS Safety Report 13795130 (Version 1)
Quarter: 2017Q3

REPORT INFORMATION
  Report Type: Report from Study
  Country: BR (occurrence: BR)
  Receive Date: 20170726
  Receipt Date: 20170726
  Transmission Date: 20171127
  Serious: Yes (Other)
  Sender: FDA-Public Use
  Company Number: PHHY2017BR108715

PATIENT
  Sex: Female
  Weight: 72 kg

DRUGS (1)
  1. DIOVAN HCT [Suspect]
     Active Substance: HYDROCHLOROTHIAZIDE\VALSARTAN
     Indication: HYPERTENSION
     Dosage: 1 DF (VALSARTAN 320 MG, HYDROCHLOROTHIAZIDE 12.5 MG), QD
     Route: 048
     Dates: start: 20100515

REACTIONS (3)
  - Astigmatism [Recovering/Resolving]
  - Myopia [Recovering/Resolving]
  - Cataract [Recovered/Resolved]
